FAERS Safety Report 4699778-1 (Version None)
Quarter: 2005Q2

REPORT INFORMATION
  Report Type: 
  Country: None (occurrence: None)
  Receive Date: 20050623
  Receipt Date: 20050613
  Transmission Date: 20051028
  Serious: Yes (Other)
  Sender: FDA-Public Use
  Company Number: 26800

PATIENT
  Age: 71 Year
  Sex: Female

DRUGS (4)
  1. ALDARA [Suspect]
     Indication: ACTINIC KERATOSIS
     Dosage: (1 SACHET, 2 IN 1 WEEK(S), TOPICAL
     Route: 061
     Dates: start: 20050401, end: 20050609
  2. ZETIA [Suspect]
     Indication: BLOOD CHOLESTEROL INCREASED
     Dates: start: 20030101
  3. SYNTHROID [Concomitant]
  4. ATENOLOL [Concomitant]

REACTIONS (5)
  - ALANINE AMINOTRANSFERASE INCREASED [None]
  - ASPARTATE AMINOTRANSFERASE INCREASED [None]
  - GALLBLADDER POLYP [None]
  - HEPATIC STEATOSIS [None]
  - RENAL CYST [None]
